FAERS Safety Report 23782412 (Version 1)
Quarter: 2024Q2

REPORT INFORMATION
  Report Type: Spontaneous
  Country: US (occurrence: US)
  Receive Date: 20240425
  Receipt Date: 20240425
  Transmission Date: 20240716
  Serious: Yes (Hospitalization, Other)
  Sender: FDA-Public Use
  Company Number: US-SUN PHARMACEUTICAL INDUSTRIES LTD-2024R1-442670

PATIENT
  Age: 39 Year
  Sex: Female

DRUGS (8)
  1. ONDANSETRON [Suspect]
     Active Substance: ONDANSETRON
     Indication: Prophylaxis of nausea and vomiting
     Route: 048
  2. PIPERACILLIN SODIUM\TAZOBACTAM SODIUM [Suspect]
     Active Substance: PIPERACILLIN SODIUM\TAZOBACTAM SODIUM
     Indication: Antibiotic therapy
     Route: 065
  3. METRONIDAZOLE [Suspect]
     Active Substance: METRONIDAZOLE
     Indication: Antibiotic therapy
     Route: 065
  4. DOCUSATE SODIUM [Suspect]
     Active Substance: DOCUSATE SODIUM
     Indication: Constipation
     Route: 065
  5. SENNA [Suspect]
     Active Substance: SENNA LEAF\SENNOSIDES\SENNOSIDES A AND B
     Indication: Constipation
     Route: 065
  6. LACTULOSE [Suspect]
     Active Substance: LACTULOSE
     Indication: Constipation
     Route: 065
  7. POLYETHYLENE GLYCOL [Suspect]
     Active Substance: POLYETHYLENE GLYCOL
     Indication: Constipation
     Route: 065
  8. MAGNESIUM SULFATE [Suspect]
     Active Substance: MAGNESIUM SULFATE\MAGNESIUM SULFATE HEPTAHYDRATE
     Indication: Pre-eclampsia
     Route: 065

REACTIONS (8)
  - Exposure during pregnancy [Unknown]
  - Acute abdomen [Unknown]
  - Diverticulum intestinal [Unknown]
  - Pneumoperitoneum [Unknown]
  - Perforation [Unknown]
  - Constipation [Unknown]
  - Perforation [Unknown]
  - Colorectal adenoma [Unknown]
